FAERS Safety Report 24965507 (Version 3)
Quarter: 2025Q1

REPORT INFORMATION
  Report Type: Spontaneous
  Country: GB (occurrence: GB)
  Receive Date: 20250213
  Receipt Date: 20250321
  Transmission Date: 20250409
  Serious: Yes (Hospitalization, Other)
  Sender: REGENERON
  Company Number: GB-REGENERON PHARMACEUTICALS, INC.-2025-030238

PATIENT
  Sex: Male

DRUGS (2)
  1. LIBTAYO [Suspect]
     Active Substance: CEMIPLIMAB-RWLC
     Indication: Bone cancer
     Dates: start: 2022
  2. LIBTAYO [Suspect]
     Active Substance: CEMIPLIMAB-RWLC
     Dates: start: 20240222

REACTIONS (9)
  - Balance disorder [Not Recovered/Not Resolved]
  - Ataxia [Unknown]
  - Neuropathy peripheral [Unknown]
  - Urinary incontinence [Recovered/Resolved]
  - Oedema peripheral [Unknown]
  - Asthenia [Unknown]
  - Product use in unapproved indication [Unknown]
  - Muscle spasms [Recovered/Resolved]
  - Abnormal dreams [Recovered/Resolved]
